FAERS Safety Report 11513150 (Version 1)
Quarter: 2015Q3

REPORT INFORMATION
  Report Type: Spontaneous
  Country: US (occurrence: None)
  Receive Date: 20150915
  Receipt Date: 20150915
  Transmission Date: 20151125
  Serious: No
  Sender: FDA-Public Use
  Company Number: None

PATIENT

DRUGS (2)
  1. METHYLPHENIDATE. [Suspect]
     Active Substance: METHYLPHENIDATE
  2. METHYLPHENIDATE. [Suspect]
     Active Substance: METHYLPHENIDATE

REACTIONS (1)
  - Wrong technique in product usage process [None]

NARRATIVE: CASE EVENT DATE: 20150910
